FAERS Safety Report 5482432-6 (Version None)
Quarter: 2007Q4

REPORT INFORMATION
  Report Type: 
  Country: None (occurrence: None)
  Receive Date: 20071011
  Receipt Date: 20071010
  Transmission Date: 20080405
  Serious: Yes (Other)
  Sender: FDA-Public Use
  Company Number: HQWYE312925SEP07

PATIENT
  Sex: Female

DRUGS (1)
  1. CORDARONE [Suspect]
     Dosage: NOT PROVIDED
     Route: 048
     Dates: start: 19990101

REACTIONS (2)
  - BALANCE DISORDER [None]
  - MACULAR DEGENERATION [None]
